FAERS Safety Report 24548265 (Version 3)
Quarter: 2024Q4

REPORT INFORMATION
  Report Type: Spontaneous
  Country: FI (occurrence: FI)
  Receive Date: 20241025
  Receipt Date: 20241118
  Transmission Date: 20250115
  Serious: No
  Sender: REGENERON
  Company Number: FI-BAYER-2024A150917

PATIENT
  Age: 54 Year

DRUGS (1)
  1. EYLEA [Suspect]
     Active Substance: AFLIBERCEPT
     Indication: Product used for unknown indication
     Dosage: UNK, SOLUTION FOR INJECTION IN PRE-FILLED SYRINGE; 40 MG/ML
     Dates: start: 20241018

REACTIONS (2)
  - Syringe issue [Unknown]
  - Conjunctival haemorrhage [Unknown]
